FAERS Safety Report 21308388 (Version 1)
Quarter: 2022Q3

REPORT INFORMATION
  Report Type: Spontaneous
  Country: GB (occurrence: GB)
  Receive Date: 20220908
  Receipt Date: 20220908
  Transmission Date: 20221027
  Serious: Yes (Hospitalization)
  Sender: FDA-Public Use
  Company Number: GB-MYLANLABS-2022M1092469

PATIENT
  Age: 40 Year
  Sex: Female

DRUGS (5)
  1. FENTANYL [Interacting]
     Active Substance: FENTANYL
     Indication: Spinal anaesthesia
     Dosage: 15 MICROGRAM, SPINAL BLOCK WAS ADMINISTERED AT L4-5
     Route: 065
  2. FENTANYL [Interacting]
     Active Substance: FENTANYL
     Indication: Myoclonus
     Dosage: 100 MICROGRAM, TOTAL
     Route: 065
  3. BUPIVACAINE [Interacting]
     Active Substance: BUPIVACAINE
     Indication: Spinal anaesthesia
     Dosage: 13 MILLIGRAM, SPINAL BLOCK WAS ADMINISTERED AT L4-5
     Route: 065
  4. MORPHINE [Interacting]
     Active Substance: MORPHINE
     Indication: Spinal anaesthesia
     Dosage: 100 MICROGRAM, SPINAL BLOCK WAS ADMINISTERED AT L4-5
     Route: 065
  5. MIDAZOLAM [Suspect]
     Active Substance: MIDAZOLAM
     Indication: Myoclonus
     Dosage: 2 MILLIGRAM, TOTAL
     Route: 065

REACTIONS (4)
  - Drug interaction [Recovered/Resolved]
  - Myoclonus [Recovered/Resolved]
  - Therapy non-responder [Unknown]
  - Maternal exposure during pregnancy [Recovered/Resolved]
